FAERS Safety Report 8558883-X (Version None)
Quarter: 2012Q3

REPORT INFORMATION
  Report Type: 
  Country: None (occurrence: None)
  Receive Date: 20120801
  Receipt Date: 20120723
  Transmission Date: 20120928
  Serious: Yes (Disabling, Other)
  Sender: FDA-Public Use
  Company Number: US-MSD-1207USA010709

PATIENT

DRUGS (8)
  1. CALCICHEW D3 [Concomitant]
     Dosage: 1 DF, BID
     Route: 048
  2. ASPIRIN [Concomitant]
     Dosage: 75 MG, UNK
     Route: 048
  3. BISOPROLOL FUMARATE [Concomitant]
     Dosage: 2.5 MG, UNK
     Route: 048
  4. SERTRALINE HYDROCHLORIDE [Concomitant]
     Dosage: 100 MG, UNK
     Route: 048
  5. LETROZOLE [Suspect]
     Dosage: 2.5 MG, QD
     Route: 048
  6. ACETAMINOPHEN [Concomitant]
     Dosage: 1 G, UNK
     Route: 048
  7. ZOCOR [Suspect]
     Dosage: 20 MG, QD
     Route: 048
  8. LANSOPRAZOLE [Concomitant]
     Dosage: 15 MG, UNK
     Route: 048

REACTIONS (4)
  - MYALGIA [None]
  - BLOOD CREATINE PHOSPHOKINASE INCREASED [None]
  - MOBILITY DECREASED [None]
  - ARTHRALGIA [None]
